FAERS Safety Report 8960844 (Version 2)
Quarter: 2013Q1

REPORT INFORMATION
  Report Type: Report from Study
  Country: IN (occurrence: IN)
  Receive Date: 20121213
  Receipt Date: 20130109
  Transmission Date: 20140127
  Serious: Yes (Hospitalization)
  Sender: FDA-Public Use
  Company Number: IN-ELI_LILLY_AND_COMPANY-IN201210008754

PATIENT
  Age: 45 Year
  Sex: Male
  Weight: 67 kg

DRUGS (11)
  1. PEMETREXED [Suspect]
     Indication: NON-SMALL CELL LUNG CANCER STAGE III
     Dosage: 500 MG/M2, D1, D22, D45
     Route: 042
     Dates: start: 20120710, end: 20120821
  2. CISPLATIN [Suspect]
     Indication: NON-SMALL CELL LUNG CANCER STAGE III
     Dosage: 75 MG/M2, D1, D22, D45
     Route: 042
     Dates: start: 20120710, end: 20120821
  3. RADIATION [Suspect]
     Indication: NON-SMALL CELL LUNG CANCER STAGE III
     Dosage: 66 GY, IN 33 FRACTIONS
     Dates: start: 20120710, end: 20120824
  4. PEMETREXED [Suspect]
     Indication: NON-SMALL CELL LUNG CANCER STAGE III
     Dosage: 500 MG/M2, UNK
     Route: 042
     Dates: start: 20120927
  5. FOLIC ACID [Concomitant]
     Indication: PROPHYLAXIS
     Dosage: UNK
     Dates: start: 20120710, end: 20121025
  6. PANTOPRAZOLE [Concomitant]
     Indication: PROPHYLAXIS
     Dosage: UNK
     Dates: start: 20120828, end: 20121025
  7. CIPROFLOXACIN [Concomitant]
     Indication: ANTIBIOTIC THERAPY
     Dosage: 500 MG, BID
     Dates: start: 20121023, end: 20121025
  8. AUGMENTIN                               /SCH/ [Concomitant]
     Indication: ANTIBIOTIC THERAPY
     Dosage: 625 MG, TID
     Dates: start: 20121023, end: 20121025
  9. DOMPERIDONE [Concomitant]
     Indication: PROPHYLAXIS OF NAUSEA AND VOMITING
     Dosage: UNK
     Dates: start: 20121018, end: 20121025
  10. CROCIN [Concomitant]
     Indication: PYREXIA
     Dosage: UNK
     Dates: start: 20121023
  11. DEXA                               /00016001/ [Concomitant]
     Indication: PROPHYLAXIS
     Dosage: UNK
     Dates: start: 20121017, end: 20121019

REACTIONS (2)
  - Febrile neutropenia [Recovered/Resolved]
  - Hyponatraemia [Recovered/Resolved]
